FAERS Safety Report 7820255-0 (Version None)
Quarter: 2011Q4

REPORT INFORMATION
  Report Type: 
  Country: None (occurrence: None)
  Receive Date: 20111018
  Receipt Date: 20111003
  Transmission Date: 20120403
  Serious: Yes (Other)
  Sender: FDA-Public Use
  Company Number: US-SHIRE-ALL1-2011-03759

PATIENT
  Age: 13 Year
  Sex: Male

DRUGS (2)
  1. INTUNIV [Suspect]
     Indication: PRODUCT USED FOR UNKNOWN INDICATION
     Dosage: 3 MG, UNKNOWN
     Route: 048
  2. INTUNIV [Suspect]
     Dosage: UNK, UNKNOWN
     Route: 048

REACTIONS (2)
  - SYNCOPE [None]
  - BRADYCARDIA [None]
